FAERS Safety Report 20813762 (Version 1)
Quarter: 2022Q2

REPORT INFORMATION
  Report Type: Spontaneous
  Country: US (occurrence: None)
  Receive Date: 20220510
  Receipt Date: 20220510
  Transmission Date: 20220721
  Serious: Yes (Death, Other)
  Sender: FDA-Public Use
  Company Number: None

PATIENT
  Age: 52 Year
  Sex: Male
  Weight: 99 kg

DRUGS (3)
  1. NEURONTIN [Suspect]
     Active Substance: GABAPENTIN
     Indication: Lumbosacral radiculopathy
     Dosage: OTHER QUANTITY : 60 CAPSULE(S);?FREQUENCY : TWICE A DAY;?
     Route: 048
  2. Ibuprofin [Concomitant]
  3. extra strength Tylenol [Concomitant]

REACTIONS (15)
  - Completed suicide [None]
  - Suicidal ideation [None]
  - Feeling abnormal [None]
  - Anxiety [None]
  - Fear [None]
  - Depression [None]
  - Thinking abnormal [None]
  - Hallucinations, mixed [None]
  - Delusion [None]
  - Pain [None]
  - Abdominal distension [None]
  - Agitation [None]
  - Pruritus [None]
  - Abnormal behaviour [None]
  - Abdominal discomfort [None]

NARRATIVE: CASE EVENT DATE: 20211001
